FAERS Safety Report 8397526-5 (Version None)
Quarter: 2012Q2

REPORT INFORMATION
  Report Type: 
  Country: None (occurrence: None)
  Receive Date: 20120529
  Receipt Date: 20120529
  Transmission Date: 20120825
  Serious: Yes (Life-Threatening)
  Sender: FDA-Public Use
  Company Number: None

PATIENT
  Sex: Male
  Weight: 105.2 kg

DRUGS (1)
  1. FOSPHENYTOIN [Suspect]
     Dosage: 2000MG IV
     Route: 042

REACTIONS (2)
  - CARDIO-RESPIRATORY ARREST [None]
  - PULSE ABSENT [None]
